FAERS Safety Report 6847517-8 (Version None)
Quarter: 2010Q3

REPORT INFORMATION
  Report Type: 
  Country: None (occurrence: None)
  Receive Date: 20100716
  Receipt Date: 20100706
  Transmission Date: 20110219
  Serious: Yes (Other)
  Sender: FDA-Public Use
  Company Number: US-PFIZER INC-2010084911

PATIENT
  Sex: Female

DRUGS (3)
  1. XALATAN [Suspect]
     Indication: GLAUCOMA
     Dosage: ONE DROP IN BOTH EYES ONCE A DAY
     Route: 047
     Dates: start: 20000101
  2. AZOPT [Concomitant]
     Dosage: UNK
  3. BRIMONIDINE [Concomitant]
     Dosage: UNK

REACTIONS (4)
  - CHOLECYSTECTOMY [None]
  - EYE IRRITATION [None]
  - FOREIGN BODY SENSATION IN EYES [None]
  - HYPERTENSION [None]
